FAERS Safety Report 9494593 (Version 2)
Quarter: 2014Q1

REPORT INFORMATION
  Report Type: Spontaneous
  Country: US (occurrence: US)
  Receive Date: 20130903
  Receipt Date: 20140129
  Transmission Date: 20141002
  Serious: No
  Sender: FDA-Public Use
  Company Number: US-009507513-1308USA013556

PATIENT
  Sex: Female

DRUGS (4)
  1. PEGINTRON [Suspect]
     Indication: CHRONIC HEPATITIS C
     Dosage: 0.4 ML, QW
     Route: 058
     Dates: start: 201307
  2. PEGINTRON [Suspect]
     Indication: HEPATITIS C
     Dosage: PEGINTRON INJECTION, 120 MICROGRAM, QW
     Route: 058
     Dates: start: 201308
  3. REBETOL [Suspect]
     Route: 048
  4. INCIVEK [Suspect]
     Dosage: UNK

REACTIONS (14)
  - Fatigue [Not Recovered/Not Resolved]
  - Diarrhoea [Not Recovered/Not Resolved]
  - Fatigue [Not Recovered/Not Resolved]
  - Dry mouth [Not Recovered/Not Resolved]
  - Dysgeusia [Not Recovered/Not Resolved]
  - Headache [Not Recovered/Not Resolved]
  - Pruritus [Not Recovered/Not Resolved]
  - Loose tooth [Not Recovered/Not Resolved]
  - Dyspnoea [Not Recovered/Not Resolved]
  - Influenza like illness [Not Recovered/Not Resolved]
  - Weight decreased [Not Recovered/Not Resolved]
  - Blood pressure increased [Recovered/Resolved]
  - Haemoglobin decreased [Not Recovered/Not Resolved]
  - Pyrexia [Not Recovered/Not Resolved]
